FAERS Safety Report 13443161 (Version 1)
Quarter: 2017Q2

REPORT INFORMATION
  Report Type: Spontaneous
  Country: US (occurrence: US)
  Receive Date: 20170414
  Receipt Date: 20170414
  Transmission Date: 20170830
  Serious: Yes (Other)
  Sender: FDA-Public Use
  Company Number: US-CHIESI USA INC-US-CHSI-17-00034

PATIENT
  Sex: Male
  Weight: 106 kg

DRUGS (4)
  1. KENGREAL [Suspect]
     Active Substance: CANGRELOR
     Route: 041
     Dates: end: 20170403
  2. BRILINTA [Suspect]
     Active Substance: TICAGRELOR
     Indication: PRODUCT USED FOR UNKNOWN INDICATION
     Route: 065
  3. KENGREAL [Suspect]
     Active Substance: CANGRELOR
     Indication: PRODUCT USED FOR UNKNOWN INDICATION
     Route: 040
     Dates: start: 20170403
  4. KENGREAL [Suspect]
     Active Substance: CANGRELOR
     Dosage: 4 MCG/KG/MIN
     Route: 041
     Dates: start: 20170403

REACTIONS (2)
  - Cardiac arrest [Unknown]
  - Electrocardiogram ST segment elevation [Unknown]

NARRATIVE: CASE EVENT DATE: 20170403
